FAERS Safety Report 5884170-4 (Version None)
Quarter: 2008Q3

REPORT INFORMATION
  Report Type: 
  Country: None (occurrence: None)
  Receive Date: 20080911
  Receipt Date: 20080827
  Transmission Date: 20090109
  Serious: Yes (Hospitalization)
  Sender: FDA-Public Use
  Company Number: 2008AL005455

PATIENT
  Age: 51 Year
  Sex: Female
  Weight: 71.6683 kg

DRUGS (5)
  1. DIGOXIN [Suspect]
     Indication: HEART RATE IRREGULAR
     Dosage: 0.25MG, DAILY, PO
     Route: 048
     Dates: start: 20060101, end: 20080407
  2. SYNTHROID [Concomitant]
  3. ACEBUTOLOL [Concomitant]
  4. ASPIRIN [Concomitant]
  5. PROTONIX [Concomitant]

REACTIONS (7)
  - ASTHENIA [None]
  - DIZZINESS [None]
  - EXTRASYSTOLES [None]
  - FATIGUE [None]
  - HEADACHE [None]
  - PALLOR [None]
  - PALPITATIONS [None]
